FAERS Safety Report 6460888-X (Version None)
Quarter: 2009Q4

REPORT INFORMATION
  Report Type: 
  Country: None (occurrence: None)
  Receive Date: 20091130
  Receipt Date: 20091120
  Transmission Date: 20100525
  Serious: Yes (Hospitalization, Other)
  Sender: FDA-Public Use
  Company Number: US-ASTRAZENECA-2009SE25930

PATIENT
  Age: 85 Year
  Sex: Female

DRUGS (11)
  1. SYMBICORT [Interacting]
     Indication: DYSPNOEA
     Dosage: 640 MCG
     Route: 055
     Dates: start: 20080801, end: 20091001
  2. ATACAND [Suspect]
     Route: 048
  3. FUROSEMIDE [Interacting]
  4. NORVASC [Interacting]
  5. ZOLPEDEM [Interacting]
  6. LOVASTATIN [Concomitant]
  7. AMBIEN [Concomitant]
  8. ASPIRIN [Concomitant]
  9. ZANTAC [Concomitant]
  10. REQUIP [Concomitant]
  11. LEVETIRACETAM [Concomitant]

REACTIONS (13)
  - ASTHENIA [None]
  - BONE DENSITY DECREASED [None]
  - CARDIAC FAILURE CONGESTIVE [None]
  - CONVULSION [None]
  - DRUG INTERACTION [None]
  - EYE DISORDER [None]
  - HEADACHE [None]
  - LETHARGY [None]
  - MUSCLE SPASMS [None]
  - MYALGIA [None]
  - OEDEMA [None]
  - SYNCOPE [None]
  - TREMOR [None]
